FAERS Safety Report 22864515 (Version 3)
Quarter: 2023Q4

REPORT INFORMATION
  Report Type: Spontaneous
  Country: US (occurrence: None)
  Receive Date: 20230825
  Receipt Date: 20231120
  Transmission Date: 20240110
  Serious: Yes (Life-Threatening, Hospitalization, Other)
  Sender: FDA-Public Use
  Company Number: 2023A190758

PATIENT
  Age: 15945 Day
  Sex: Male
  Weight: 83.9 kg

DRUGS (3)
  1. FARXIGA [Suspect]
     Active Substance: DAPAGLIFLOZIN PROPANEDIOL
     Indication: Diabetes mellitus
     Route: 048
     Dates: start: 20220715, end: 20230201
  2. FARXIGA [Suspect]
     Active Substance: DAPAGLIFLOZIN PROPANEDIOL
     Indication: Renal failure
     Route: 048
     Dates: start: 20220715, end: 20230201
  3. METFORMIN [Concomitant]
     Active Substance: METFORMIN HYDROCHLORIDE
     Indication: Diabetes mellitus
     Route: 048
     Dates: start: 2014, end: 20230128

REACTIONS (16)
  - Diabetic coma [Recovered/Resolved]
  - Pancreatitis [Recovered/Resolved]
  - Hyperglycaemia [Recovered/Resolved]
  - Chronic kidney disease [Unknown]
  - Diabetic ketoacidosis [Recovered/Resolved]
  - Iron deficiency anaemia [Unknown]
  - Blood testosterone decreased [Unknown]
  - Gastrooesophageal reflux disease [Unknown]
  - Anaemia of chronic disease [Unknown]
  - Skin ulcer [Unknown]
  - Hypercholesterolaemia [Unknown]
  - Pain [Unknown]
  - Essential hypertension [Unknown]
  - Constipation [Unknown]
  - Hypertriglyceridaemia [Unknown]
  - Body mass index [Unknown]

NARRATIVE: CASE EVENT DATE: 20230128
